FAERS Safety Report 9156695 (Version 1)
Quarter: 2013Q1

REPORT INFORMATION
  Report Type: Spontaneous
  Country: US (occurrence: None)
  Receive Date: 20130308
  Receipt Date: 20130308
  Transmission Date: 20140127
  Serious: Yes (Hospitalization)
  Sender: FDA-Public Use
  Company Number: None

PATIENT
  Sex: Male
  Weight: 76.36 kg

DRUGS (2)
  1. CARBOPLATIN [Suspect]
     Dates: end: 20130225
  2. PACLITAXEL (TAXOL) [Suspect]
     Dates: end: 20130225

REACTIONS (2)
  - Dehydration [None]
  - Device leakage [None]
